FAERS Safety Report 6299229-X (Version None)
Quarter: 2009Q3

REPORT INFORMATION
  Report Type: 
  Country: None (occurrence: None)
  Receive Date: 20090806
  Receipt Date: 20090724
  Transmission Date: 20100115
  Serious: Yes (Hospitalization, Other)
  Sender: FDA-Public Use
  Company Number: GB-PFIZER INC-2009241779

PATIENT

DRUGS (4)
  1. ADRIAMYCIN RDF [Suspect]
     Indication: HODGKIN'S DISEASE
     Dosage: 25 MG/M2, ON DAYS1 AND 15 OF A 28-DAY CYCLE
  2. BLEOMYCIN SULFATE [Suspect]
     Indication: HODGKIN'S DISEASE
     Dosage: 10 MG/M2, ON DAYS1 AND 15 OF A 28-DAY CYCLE
  3. DACARBAZINE [Suspect]
     Indication: HODGKIN'S DISEASE
     Dosage: 375 MG/M2, ON DAYS1 AND 15 OF A 28-DAY CYCLE
  4. VINBLASTINE [Suspect]
     Indication: HODGKIN'S DISEASE
     Dosage: 6 MG/M2, ON DAYS1 AND 15 OF A 28-DAY CYCLE

REACTIONS (3)
  - FEBRILE NEUTROPENIA [None]
  - LOWER RESPIRATORY TRACT INFECTION [None]
  - PULMONARY TOXICITY [None]
